FAERS Safety Report 7353765-3 (Version None)
Quarter: 2011Q1

REPORT INFORMATION
  Report Type: 
  Country: None (occurrence: None)
  Receive Date: 20110315
  Receipt Date: 20110309
  Transmission Date: 20110831
  Serious: Yes (Other)
  Sender: FDA-Public Use
  Company Number: GB-TEVA-270784ISR

PATIENT
  Age: 61 Year

DRUGS (2)
  1. DILTIAZEM [Suspect]
     Route: 048
     Dates: end: 20101104
  2. DILTIAZEM HYDROCHLORIDE [Suspect]
     Route: 048
     Dates: start: 20101006, end: 20101104

REACTIONS (8)
  - NAUSEA [None]
  - DRUG HYPERSENSITIVITY [None]
  - BLOOD PRESSURE INCREASED [None]
  - VISION BLURRED [None]
  - HYPOAESTHESIA [None]
  - DIZZINESS [None]
  - VERTIGO [None]
  - VISUAL IMPAIRMENT [None]
